FAERS Safety Report 8206556-5 (Version None)
Quarter: 2012Q1

REPORT INFORMATION
  Report Type: 
  Country: None (occurrence: None)
  Receive Date: 20120313
  Receipt Date: 20120312
  Transmission Date: 20120608
  Serious: Yes (Hospitalization, Disabling, Other)
  Sender: FDA-Public Use
  Company Number: US-MERCK-1107USA03834

PATIENT
  Age: 50 Year
  Sex: Female
  Weight: 49 kg

DRUGS (9)
  1. FOSAMAX [Suspect]
     Indication: OSTEOPENIA
     Route: 048
     Dates: start: 20030201, end: 20071101
  2. NEXIUM [Concomitant]
     Indication: GASTROOESOPHAGEAL REFLUX DISEASE
     Route: 065
     Dates: start: 20000101
  3. FOSINOPRIL SODIUM [Concomitant]
     Indication: HYPERTENSION
     Route: 065
     Dates: start: 20000101
  4. NITROGLYCERIN [Concomitant]
     Indication: CARDIAC DISORDER
     Route: 065
     Dates: start: 20000101
  5. XANAX [Concomitant]
     Indication: ANXIETY
     Route: 065
  6. PROZAC [Concomitant]
     Indication: ANXIETY
     Route: 065
     Dates: start: 20000101
  7. NORVASC [Concomitant]
     Indication: HYPERTENSION
     Route: 065
     Dates: start: 20000101
  8. AMBIEN [Concomitant]
     Indication: SLEEP DISORDER
     Route: 065
     Dates: start: 20000101
  9. PLAVIX [Concomitant]
     Indication: CARDIAC DISORDER
     Route: 065
     Dates: start: 20020101

REACTIONS (64)
  - OSTEONECROSIS OF JAW [None]
  - UPPER LIMB FRACTURE [None]
  - PANCREATITIS CHRONIC [None]
  - IMPAIRED HEALING [None]
  - HYPERSENSITIVITY [None]
  - TREMOR [None]
  - BACK PAIN [None]
  - DEPRESSION [None]
  - TOOTH DISORDER [None]
  - SINUS BRADYCARDIA [None]
  - PALPITATIONS [None]
  - HYPOACUSIS [None]
  - TIBIA FRACTURE [None]
  - PRESYNCOPE [None]
  - HYPOTENSION [None]
  - PNEUMONIA [None]
  - DENTAL CARIES [None]
  - COLON ADENOMA [None]
  - TEMPOROMANDIBULAR JOINT SYNDROME [None]
  - PERIPHERAL VASCULAR DISORDER [None]
  - TYMPANIC MEMBRANE PERFORATION [None]
  - TOOTH INFECTION [None]
  - ORAL CAVITY FISTULA [None]
  - JAW DISORDER [None]
  - BONE LOSS [None]
  - TOOTH FRACTURE [None]
  - VERTIGO [None]
  - MYOFASCIAL PAIN SYNDROME [None]
  - MIDDLE EAR EFFUSION [None]
  - ARTERIOSCLEROSIS CORONARY ARTERY [None]
  - CEREBROVASCULAR ACCIDENT [None]
  - CARDIAC MURMUR [None]
  - STOMATITIS [None]
  - ULNA FRACTURE [None]
  - HEADACHE [None]
  - FIBROCYSTIC BREAST DISEASE [None]
  - CHEST PAIN [None]
  - CHRONIC OBSTRUCTIVE PULMONARY DISEASE [None]
  - FIBROMYALGIA [None]
  - MYOCARDIAL INFARCTION [None]
  - ANALGESIC INTERVENTION SUPPORTIVE THERAPY [None]
  - FRACTURE [None]
  - EAR INFECTION [None]
  - PAIN [None]
  - SOFT TISSUE INJURY [None]
  - CAROTID ARTERY STENOSIS [None]
  - EXOSTOSIS [None]
  - CARDIAC DISORDER [None]
  - ANAEMIA [None]
  - EUSTACHIAN TUBE DYSFUNCTION [None]
  - CONTUSION [None]
  - OSTEOMA [None]
  - ORAL INFECTION [None]
  - IRRITABLE BOWEL SYNDROME [None]
  - INFLAMMATION [None]
  - FALL [None]
  - CELLULITIS [None]
  - ANXIETY [None]
  - BLINDNESS UNILATERAL [None]
  - EAR DISCOMFORT [None]
  - DYSPHAGIA [None]
  - SEBORRHOEIC KERATOSIS [None]
  - OSTEOARTHRITIS [None]
  - MITRAL VALVE INCOMPETENCE [None]
